FAERS Safety Report 9669156 (Version 3)
Quarter: 2013Q4

REPORT INFORMATION
  Report Type: Spontaneous
  Country: JP (occurrence: JP)
  Receive Date: 20131105
  Receipt Date: 20131217
  Transmission Date: 20140711
  Serious: No
  Sender: FDA-Public Use
  Company Number: JP-ELI_LILLY_AND_COMPANY-JP201309007010

PATIENT
  Age: 46 Year
  Sex: Male
  Weight: 57.9 kg

DRUGS (3)
  1. GEMZAR [Suspect]
     Indication: MALIGNANT NEOPLASM OF AMPULLA OF VATER
     Dosage: UNK, OTHER
     Route: 042
     Dates: start: 20130712
  2. OMEPRAZOLE [Concomitant]
     Dosage: 10 MG, QD
     Route: 048
     Dates: start: 20130516
  3. BERIZYM                            /01945301/ [Concomitant]
     Dosage: 0.5 G, TID
     Route: 048
     Dates: start: 20130516

REACTIONS (1)
  - Erectile dysfunction [Not Recovered/Not Resolved]
